FAERS Safety Report 6072174-0 (Version None)
Quarter: 2009Q1

REPORT INFORMATION
  Report Type: 
  Country: None (occurrence: None)
  Receive Date: 20090210
  Receipt Date: 20090204
  Transmission Date: 20090719
  Serious: Yes (Death, Hospitalization)
  Sender: FDA-Public Use
  Company Number: B0558474A

PATIENT
  Age: 65 Year
  Sex: Female
  Weight: 90 kg

DRUGS (5)
  1. LAMICTAL [Suspect]
     Indication: DEPRESSION
     Dosage: 125MG PER DAY
     Route: 048
     Dates: end: 20080923
  2. SEROQUEL [Concomitant]
     Indication: SCHIZOAFFECTIVE DISORDER
     Dosage: 400MG PER DAY
     Route: 048
     Dates: end: 20080923
  3. DEPAKENE [Concomitant]
     Indication: SCHIZOAFFECTIVE DISORDER
     Dosage: 1500MG PER DAY
     Route: 048
     Dates: end: 20080923
  4. ELTROXIN [Concomitant]
     Indication: HYPOTHYROIDISM
     Dosage: .1MG PER DAY
     Route: 048
     Dates: end: 20080923
  5. TORSEMIDE [Concomitant]
     Indication: SCHIZOAFFECTIVE DISORDER
     Dosage: 5MG PER DAY
     Route: 048
     Dates: end: 20080923

REACTIONS (2)
  - ILL-DEFINED DISORDER [None]
  - SYNCOPE [None]
